FAERS Safety Report 12744980 (Version 1)
Quarter: 2016Q3

REPORT INFORMATION
  Report Type: Report from Study
  Country: CA (occurrence: CA)
  Receive Date: 20160915
  Receipt Date: 20160915
  Transmission Date: 20161109
  Serious: Yes (Hospitalization, Other)
  Sender: FDA-Public Use
  Company Number: CA-AMGEN-CANSL2016121154

PATIENT
  Sex: Female

DRUGS (3)
  1. NEUPOGEN [Suspect]
     Active Substance: FILGRASTIM
     Indication: RED BLOOD CELL COUNT ABNORMAL
     Dosage: UNK, 3 DAYS REGIMENTS (MONDAYS, WEDNESDAYS, FRIDAYS)
     Route: 065
     Dates: end: 20160728
  2. NEUPOGEN [Suspect]
     Active Substance: FILGRASTIM
     Indication: WHITE BLOOD CELL COUNT ABNORMAL
     Dosage: UNK, 1ML/300MCG, TWICE DAY REGIMENT (MONDAYS AND WEDNESDAY)
     Route: 065
  3. NEUPOGEN [Suspect]
     Active Substance: FILGRASTIM
     Indication: BLOOD COUNT ABNORMAL

REACTIONS (5)
  - Blood urine present [Unknown]
  - Haematochezia [Unknown]
  - Adverse event [Unknown]
  - Thrombosis [Unknown]
  - Gastrointestinal disorder [Unknown]
